FAERS Safety Report 19932233 (Version 1)
Quarter: 2021Q4

REPORT INFORMATION
  Report Type: Spontaneous
  Country: US (occurrence: US)
  Receive Date: 20211007
  Receipt Date: 20211007
  Transmission Date: 20220303
  Serious: Yes (Hospitalization)
  Sender: FDA-Public Use
  Company Number: None

PATIENT
  Age: 42 Year
  Sex: Male

DRUGS (1)
  1. REGEN-COV [Suspect]
     Active Substance: CASIRIVIMAB\IMDEVIMAB
     Route: 042
     Dates: start: 20210810, end: 20210810

REACTIONS (9)
  - Hyperhidrosis [None]
  - Unresponsive to stimuli [None]
  - Hypotension [None]
  - Presyncope [None]
  - Feeling hot [None]
  - Hyperhidrosis [None]
  - Cold sweat [None]
  - Heart rate decreased [None]
  - Infusion related reaction [None]

NARRATIVE: CASE EVENT DATE: 20210810
